FAERS Safety Report 9697812 (Version 3)
Quarter: 2014Q1

REPORT INFORMATION
  Report Type: Spontaneous
  Country: US (occurrence: US)
  Receive Date: 20131120
  Receipt Date: 20140113
  Transmission Date: 20141002
  Serious: No
  Sender: FDA-Public Use
  Company Number: US-PFIZER INC-2013330270

PATIENT
  Age: 11 Year
  Sex: Male
  Weight: 29.5 kg

DRUGS (2)
  1. GENOTROPIN [Suspect]
     Indication: GROWTH HORMONE DEFICIENCY
     Dosage: 1.4 MG, 1X/DAY
     Route: 058
     Dates: start: 201311
  2. PATADAY [Concomitant]
     Dosage: 0.2 %, UNK
     Route: 047

REACTIONS (2)
  - Accidental overdose [Unknown]
  - Headache [Unknown]
